FAERS Safety Report 5174202-3 (Version None)
Quarter: 2006Q4

REPORT INFORMATION
  Report Type: 
  Country: None (occurrence: None)
  Receive Date: 20061214
  Receipt Date: 20061124
  Transmission Date: 20070319
  Serious: Yes (Other)
  Sender: FDA-Public Use
  Company Number: JP-ROCHE-472688

PATIENT
  Age: 62 Year
  Sex: Male
  Weight: 58 kg

DRUGS (2)
  1. PEGASYS [Suspect]
     Route: 058
     Dates: start: 20051227, end: 20060905
  2. PURSENNID [Concomitant]
     Route: 048
     Dates: start: 20060110, end: 20060704

REACTIONS (1)
  - RETINAL DETACHMENT [None]
